FAERS Safety Report 9784735 (Version 2)
Quarter: 2013Q4

REPORT INFORMATION
  Report Type: Report from Study
  Country: US (occurrence: US)
  Receive Date: 20131227
  Receipt Date: 20131227
  Transmission Date: 20140711
  Serious: Yes (Other)
  Sender: FDA-Public Use
  Company Number: US-ROCHE-1251197

PATIENT
  Age: 49 Year
  Sex: Female

DRUGS (20)
  1. TRAMADOL [Concomitant]
     Route: 048
  2. METHOTREXATE [Concomitant]
     Route: 051
  3. PREDNISONE [Concomitant]
     Route: 048
  4. SAVELLA [Concomitant]
     Route: 048
  5. PRILOSEC [Concomitant]
     Route: 048
  6. MORPHINE ER [Concomitant]
     Route: 048
  7. ADVAIR [Concomitant]
     Dosage: 500/50
     Route: 055
  8. PROAIR (UNITED STATES) [Concomitant]
     Dosage: USE AS NEEDED
     Route: 055
  9. WARFARIN [Concomitant]
     Dosage: QD EXCEPT THURSDAY
     Route: 048
  10. AMITRIPTYLINE [Concomitant]
     Route: 048
  11. FUROSEMIDE [Concomitant]
     Route: 048
  12. FUROSEMIDE [Concomitant]
     Route: 065
  13. MORPHINE IR [Concomitant]
     Dosage: TAKE IN MORNING
     Route: 048
  14. SPIRIVA [Concomitant]
     Route: 065
  15. ALBUTEROL SULFATE [Concomitant]
     Route: 065
  16. RITUXAN [Suspect]
     Indication: SJOGREN^S SYNDROME
     Route: 042
  17. RITUXAN [Suspect]
     Indication: ARTHRALGIA
  18. RITUXAN [Suspect]
     Indication: MUSCULOSKELETAL STIFFNESS
  19. RITUXAN [Suspect]
     Indication: PLANTAR FASCIITIS
  20. NAPROXEN [Suspect]
     Indication: PRODUCT USED FOR UNKNOWN INDICATION
     Route: 065

REACTIONS (20)
  - Enterocolitis bacterial [Recovered/Resolved]
  - Back pain [Not Recovered/Not Resolved]
  - Insomnia [Not Recovered/Not Resolved]
  - Arthralgia [Not Recovered/Not Resolved]
  - Joint range of motion decreased [Not Recovered/Not Resolved]
  - Tenderness [Unknown]
  - Pain in extremity [Not Recovered/Not Resolved]
  - Myalgia [Not Recovered/Not Resolved]
  - Joint stiffness [Not Recovered/Not Resolved]
  - Plantar fasciitis [Unknown]
  - Skin infection [Unknown]
  - Pain [Unknown]
  - Dyspnoea [Unknown]
  - Arthralgia [Unknown]
  - Weight increased [Unknown]
  - Fatigue [Unknown]
  - Joint swelling [Unknown]
  - Chest pain [Unknown]
  - Palpitations [Unknown]
  - Haemoglobin decreased [Unknown]
